FAERS Safety Report 5192497-7 (Version None)
Quarter: 2006Q4

REPORT INFORMATION
  Report Type: 
  Country: None (occurrence: None)
  Receive Date: 20061220
  Receipt Date: 20061211
  Transmission Date: 20070319
  Serious: Yes (Hospitalization)
  Sender: FDA-Public Use
  Company Number: 2006152498

PATIENT
  Age: 79 Year
  Sex: Female

DRUGS (2)
  1. XALATAN [Suspect]
     Dosage: 2 DOSE FORMS, TOPICAL
     Route: 061
     Dates: start: 20041222, end: 20060619
  2. MODOPAR (BENSERAZIDE HYDROCHLORIDE, LEVODOPA) [Suspect]
     Dosage: ORAL
     Route: 048

REACTIONS (5)
  - ANTINUCLEAR ANTIBODY POSITIVE [None]
  - KERATITIS [None]
  - SINUSITIS [None]
  - UVEITIS [None]
  - VISUAL ACUITY REDUCED [None]
